FAERS Safety Report 10644304 (Version 3)
Quarter: 2015Q1

REPORT INFORMATION
  Report Type: Report from Study
  Country: US (occurrence: US)
  Receive Date: 20141210
  Receipt Date: 20150324
  Transmission Date: 20150720
  Serious: Yes (Other)
  Sender: FDA-Public Use
  Company Number: US-SA-2014SA167182

PATIENT
  Sex: Female

DRUGS (5)
  1. LANTUS SOLOSTAR [Suspect]
     Active Substance: INSULIN GLARGINE
     Indication: TYPE 1 DIABETES MELLITUS
     Dosage: DOSE: 20 UNITS OF LANTUS IN AM, AT NIGHT 50 UNITS OF LANTUS DOSE:62 UNIT(S)
     Route: 065
  2. LANTUS SOLOSTAR [Suspect]
     Active Substance: INSULIN GLARGINE
     Indication: TYPE 1 DIABETES MELLITUS
     Dosage: MORNING:20 UNITS IN THE MORNING AND 35 UNITS AT NIGHT
     Route: 065
  3. NOVOLOG [Concomitant]
     Active Substance: INSULIN ASPART
     Indication: TYPE 1 DIABETES MELLITUS
     Dosage: THREE SHOTS A DAY?12 UNITS IN AM, 12 UNITS IN LUNCH AND THEN SLIDING SCALE WITH NOVALOG AT NIGHT
  4. SOLOSTAR [Concomitant]
     Active Substance: DEVICE
     Indication: TYPE 1 DIABETES MELLITUS
  5. LANTUS SOLOSTAR [Suspect]
     Active Substance: INSULIN GLARGINE
     Indication: TYPE 1 DIABETES MELLITUS
     Dosage: DOSE: 20 UNITS OF LANTUS IN AM, AT NIGHT 50 UNITS OF LANTUS
     Route: 065

REACTIONS (3)
  - Leg amputation [Unknown]
  - Drug administration error [Unknown]
  - Genital disorder female [Unknown]
